FAERS Safety Report 8447440-1 (Version None)
Quarter: 2012Q2

REPORT INFORMATION
  Report Type: 
  Country: None (occurrence: None)
  Receive Date: 20120619
  Receipt Date: 20120611
  Transmission Date: 20120825
  Serious: Yes (Other)
  Sender: FDA-Public Use
  Company Number: US-ASTRAZENECA-2012SE16854

PATIENT
  Age: 59 Year
  Sex: Female
  Weight: 83 kg

DRUGS (66)
  1. NEXIUM [Suspect]
     Indication: CHEST PAIN
     Route: 048
     Dates: start: 20090101, end: 20110101
  2. NEXIUM [Suspect]
     Route: 048
     Dates: start: 20090519
  3. NEXIUM [Suspect]
     Route: 048
     Dates: start: 20090519
  4. GLIMEPIRIDE [Concomitant]
     Dosage: 1 TABLET WITH BREAKFAST OR THE FIRST MAIN MEAL
     Route: 048
     Dates: start: 20111024
  5. ESTRADERM [Concomitant]
     Dates: start: 20081208
  6. ZOFRAN ODT [Concomitant]
  7. LISINOPRIL [Concomitant]
     Dates: start: 20100215
  8. FLUCONAZOLE [Concomitant]
     Dates: start: 20090212
  9. NASONEX [Concomitant]
  10. ADVAIR DISKUS 100/50 [Concomitant]
     Indication: ASTHMA
     Dosage: 250-50 MCG/DOSE 1 EVERY 12 HOURS
     Dates: start: 20100902
  11. MAXAZIDE [Concomitant]
     Indication: HYPERTENSIVE HEART DISEASE
     Dosage: 37.5/25 QD
     Dates: start: 20100215
  12. ATENOLOL [Concomitant]
     Indication: HYPERTENSIVE HEART DISEASE
  13. ATENOLOL [Concomitant]
     Indication: HYPERTENSION
  14. ACETAMINOPHEN [Concomitant]
     Dosage: PRN
     Dates: start: 20100215
  15. ZYRTEC-D 12 HOUR [Concomitant]
     Indication: ASTHMA
     Dosage: 5-120 MG ONCE A DAY
     Dates: start: 20100902
  16. EXFORGE HCT [Concomitant]
     Indication: HYPERTENSION
     Dosage: 10-160-12.5MG ONCE A DAY
     Dates: start: 20100902
  17. CARISOPRODOL [Concomitant]
     Dates: start: 20090203
  18. NEXIUM [Suspect]
     Route: 048
     Dates: start: 20110101
  19. ATENOLOL [Concomitant]
     Dates: start: 20100902
  20. ALBUTEROL SULATE [Concomitant]
     Dosage: 108(90 BASE) MCG/ACT 2 PUFF INHALATION EVERY 6 HRS PRN
     Dates: start: 20111024
  21. MECLIZINE HCL [Concomitant]
     Route: 048
     Dates: start: 20111024
  22. CITALOPRAM HYDROBROMIDE [Concomitant]
     Dates: start: 20100215
  23. NASONEX [Concomitant]
     Dosage: AS NEEDED
     Dates: start: 20100215
  24. VITAMIN E [Concomitant]
     Dosage: 1000 UNIT 3 PILLS DAILY
  25. SIMVASTATION [Concomitant]
     Dates: start: 20100215
  26. ASPIRIN [Concomitant]
     Indication: CHEST PAIN
     Dates: start: 20100215
  27. ESTRADERM [Concomitant]
     Dosage: 0.05MG ONE 24-HOUR PATCH TO SKIN A DAY
     Dates: start: 20100902
  28. IBUPROFEN [Concomitant]
     Dosage: AS NEEDED
     Dates: start: 20100215
  29. IBUPROFEN [Concomitant]
     Dates: start: 20100902
  30. HYDROCODONE BITARTRATE AND ACETAMINOPHEN [Concomitant]
     Dosage: 5/500
     Dates: start: 20081128
  31. LISINOPRIL [Concomitant]
     Dates: start: 20081205
  32. ALENDRONATE SODIUM [Concomitant]
     Dosage: 70 MG 1 TABLET ONCE A WEEK
     Dates: start: 20100902
  33. EXFORGE [Concomitant]
     Indication: HYPERTENSION
     Dates: start: 20100902
  34. NEXIUM [Suspect]
     Indication: GASTROOESOPHAGEAL REFLUX DISEASE
     Route: 048
     Dates: start: 20090101, end: 20110101
  35. NEXIUM [Suspect]
     Route: 048
     Dates: start: 20110101
  36. NEXIUM [Suspect]
     Route: 048
     Dates: start: 20111024
  37. ROLAIDS [Concomitant]
  38. POTASSIUM ACETATE [Concomitant]
     Route: 048
  39. ATENOLOL [Concomitant]
     Dates: start: 20090407
  40. NEXIUM [Suspect]
     Route: 048
     Dates: start: 20100902
  41. NEXIUM [Suspect]
     Route: 048
     Dates: start: 20111024
  42. ACETAMINOPHEN [Concomitant]
     Dosage: 2 30 500 MG AS DIRECTED
  43. ALBUTEROL SULATE [Concomitant]
     Indication: ASTHMA
     Dosage: 0.083%ML AS NEEDED
  44. ALBUTEROL SULATE [Concomitant]
     Dosage: HFA 2 PUFFS QID
     Dates: start: 20100215
  45. LEVAQUIN [Concomitant]
     Dates: start: 20080918
  46. BENADRYL [Concomitant]
     Dates: start: 20100902
  47. CIPRO HC [Concomitant]
  48. NEXIUM [Suspect]
     Route: 048
     Dates: start: 20100902
  49. ATENOLOL [Concomitant]
     Dates: start: 20100902
  50. ZYRTEC-D 12 HOUR [Concomitant]
     Indication: MULTIPLE ALLERGIES
     Dosage: 5-120 MG ONCE A DAY
     Dates: start: 20100902
  51. CLONAZEPAM [Concomitant]
  52. IBUPROFEN [Concomitant]
     Dates: start: 20080826
  53. METRONIDAZOLE [Concomitant]
     Dates: start: 20090218
  54. BENADRYL [Concomitant]
     Dates: start: 20100215
  55. CALCIUM CALTRATE [Concomitant]
     Dosage: 600 DAILY
     Dates: start: 20100215
  56. ASCORBIC ACID [Concomitant]
     Dosage: ONCE A DAY
     Dates: start: 20100215
  57. PRAVASTATIN SODIUM TABLET [Concomitant]
     Indication: HYPERLIPIDAEMIA
  58. ATENOLOL [Concomitant]
     Dates: start: 20090407
  59. SIMVASTATION [Concomitant]
     Indication: HYPERLIPIDAEMIA
     Dates: start: 20100101
  60. ALBUTEROL SULATE [Concomitant]
     Dosage: BY NEBULIZER 3 TO 4 TIMES A DAY
     Dates: start: 20100215
  61. ZYRTEC-D 12 HOUR [Concomitant]
     Indication: NASAL CONGESTION
     Dosage: 5-120 MG ONCE A DAY
     Dates: start: 20100902
  62. EXFORGE HCT [Concomitant]
     Indication: HYPERTENSIVE HEART DISEASE
     Dosage: 10-160-12.5MG ONCE A DAY
     Dates: start: 20100902
  63. GLIMEPIRIDE [Concomitant]
     Indication: DIABETES MELLITUS
  64. MECLIZINE HCL [Concomitant]
     Indication: TRANSIENT ISCHAEMIC ATTACK
  65. CITALOPRAM HYDROBROMIDE [Concomitant]
     Dates: start: 20081128
  66. MAXAZIDE [Concomitant]
     Indication: HYPERTENSION
     Dosage: 37.5/25 QD
     Dates: start: 20100215

REACTIONS (12)
  - FOOT FRACTURE [None]
  - MIGRAINE [None]
  - VITAMIN D DEFICIENCY [None]
  - TRICUSPID VALVE DISEASE [None]
  - CEREBROVASCULAR ACCIDENT [None]
  - CARDIAC DISORDER [None]
  - VERTIGO [None]
  - ANXIETY [None]
  - TRANSIENT ISCHAEMIC ATTACK [None]
  - OSTEOPOROSIS [None]
  - DEPRESSION [None]
  - OSTEOARTHRITIS [None]
